FAERS Safety Report 9161010 (Version 3)
Quarter: 2013Q1

REPORT INFORMATION
  Report Type: Spontaneous
  Country: FR (occurrence: None)
  Receive Date: 20130122
  Receipt Date: 20130125
  Transmission Date: 20140127
  Serious: Yes (Hospitalization)
  Sender: FDA-Public Use
  Company Number: 2013034467

PATIENT
  Age: 62 Year
  Sex: Female

DRUGS (1)
  1. PRIVIGEN [Suspect]
     Indication: TRANSPLANT REJECTION
     Dosage: 60 G, 100MG/ML INTRAVENOUS (NOT OTHERWISE SPECIFIED)
     Dates: start: 20121203, end: 20121204

REACTIONS (5)
  - Renal failure acute [None]
  - Bicytopenia [None]
  - Anaemia [None]
  - Thrombocytopenia [None]
  - Off label use [None]
